FAERS Safety Report 10816188 (Version 1)
Quarter: 2015Q1

REPORT INFORMATION
  Report Type: Report from Study
  Country: US (occurrence: US)
  Receive Date: 20150218
  Receipt Date: 20150218
  Transmission Date: 20150721
  Serious: No
  Sender: FDA-Public Use
  Company Number: US-ABBVIE-14K-163-1283961-00

PATIENT
  Age: 48 Year
  Sex: Female

DRUGS (10)
  1. HUMIRA [Suspect]
     Active Substance: ADALIMUMAB
     Route: 058
     Dates: start: 20140923
  2. LIALDA [Concomitant]
     Active Substance: MESALAMINE
     Indication: CROHN^S DISEASE
  3. DILANTIN [Concomitant]
     Active Substance: PHENYTOIN
     Indication: SEIZURE
  4. HUMIRA [Suspect]
     Active Substance: ADALIMUMAB
     Indication: CROHN^S DISEASE
     Dates: start: 20140822, end: 20140822
  5. HUMIRA [Suspect]
     Active Substance: ADALIMUMAB
     Dates: start: 20140905, end: 20140905
  6. HUMIRA [Suspect]
     Active Substance: ADALIMUMAB
  7. IMURAN [Concomitant]
     Active Substance: AZATHIOPRINE
     Indication: CROHN^S DISEASE
  8. PEPCID [Concomitant]
     Active Substance: FAMOTIDINE
     Indication: CROHN^S DISEASE
  9. PREDNISONE. [Concomitant]
     Active Substance: PREDNISONE
     Indication: COLITIS
  10. METOPROLOL [Concomitant]
     Active Substance: METOPROLOL
     Indication: HYPERTENSION

REACTIONS (1)
  - Injection site pain [Recovered/Resolved]

NARRATIVE: CASE EVENT DATE: 20140822
